FAERS Safety Report 17806254 (Version 1)
Quarter: 2020Q2

REPORT INFORMATION
  Report Type: Spontaneous
  Country: US (occurrence: US)
  Receive Date: 20200519
  Receipt Date: 20200519
  Transmission Date: 20200714
  Serious: Yes (Life-Threatening, Disabling, Other)
  Sender: FDA-Public Use
  Company Number: None

PATIENT

DRUGS (2)
  1. BUPIVACAINE INJECTION [Suspect]
     Active Substance: BUPIVACAINE
  2. TRANEXAMIC ACID INJECTION [Suspect]
     Active Substance: TRANEXAMIC ACID

REACTIONS (3)
  - Wrong product administered [None]
  - Product packaging confusion [None]
  - Adverse event [None]
